FAERS Safety Report 4336536-1 (Version None)
Quarter: 2004Q2

REPORT INFORMATION
  Report Type: 
  Country: None (occurrence: None)
  Receive Date: 20040412
  Receipt Date: 20040304
  Transmission Date: 20050107
  Serious: Yes (Disabling)
  Sender: FDA-Public Use
  Company Number: FR-BRISTOL-MYERS SQUIBB COMPANY-12524583

PATIENT
  Age: 48 Year
  Sex: Male

DRUGS (1)
  1. VASTEN TABS 40 MG [Suspect]
     Indication: HYPERCHOLESTEROLAEMIA
     Route: 048
     Dates: start: 20020301, end: 20020701

REACTIONS (1)
  - TENDONITIS [None]
